FAERS Safety Report 6856325-3 (Version None)
Quarter: 2010Q2

REPORT INFORMATION
  Report Type: 
  Country: None (occurrence: None)
  Receive Date: 20100630
  Receipt Date: 20100325
  Transmission Date: 20101027
  Serious: No
  Sender: FDA-Public Use
  Company Number: 1000012781

PATIENT
  Age: 47 Year
  Sex: Male
  Weight: 79.3795 kg

DRUGS (3)
  1. BYSTOLIC [Suspect]
     Dosage: 2.5 MG (2.5 MG, 1 IN 1 D),ORAL
     Route: 048
  2. CLONAZEPAM [Concomitant]
  3. LOTREL [Concomitant]

REACTIONS (1)
  - HEART RATE INCREASED [None]
